FAERS Safety Report 4487807-X (Version None)
Quarter: 2004Q4

REPORT INFORMATION
  Report Type: 
  Country: None (occurrence: None)
  Receive Date: 20041025
  Receipt Date: 20041011
  Transmission Date: 20050328
  Serious: Yes (Other)
  Sender: FDA-Public Use
  Company Number: 2004076080

PATIENT
  Age: 60 Year
  Sex: Male
  Weight: 58.9676 kg

DRUGS (3)
  1. LISTERINE (EUCALYPTOL, MENTHOL, METHYL SALICYLATE, THYMOL) [Suspect]
     Indication: INTENTIONAL OVERDOSE
     Dosage: UNSPECIFIED AMOUNT QD, ORAL
     Route: 048
  2. ALPRAZOLAM [Concomitant]
  3. BUPROPION HYDROCHLORIDE [Concomitant]

REACTIONS (1)
  - INTENTIONAL MISUSE [None]
